FAERS Safety Report 11957255 (Version 1)
Quarter: 2016Q1

REPORT INFORMATION
  Report Type: Report from Study
  Country: US (occurrence: US)
  Receive Date: 20160126
  Receipt Date: 20160126
  Transmission Date: 20160526
  Serious: No
  Sender: FDA-Public Use
  Company Number: US-ABBVIE-15K-163-1342420-00

PATIENT
  Age: 33 Year
  Sex: Female

DRUGS (1)
  1. HUMIRA [Suspect]
     Active Substance: ADALIMUMAB
     Indication: COLITIS ULCERATIVE
     Route: 058
     Dates: start: 20141202

REACTIONS (10)
  - Chills [Recovered/Resolved]
  - Injection site pruritus [Recovered/Resolved]
  - Respiratory tract congestion [Not Recovered/Not Resolved]
  - Eye swelling [Recovered/Resolved]
  - Upper respiratory tract infection [Not Recovered/Not Resolved]
  - Injection site swelling [Recovered/Resolved]
  - Colitis ulcerative [Recovered/Resolved]
  - Headache [Not Recovered/Not Resolved]
  - Rash generalised [Recovered/Resolved]
  - Pyrexia [Recovered/Resolved]

NARRATIVE: CASE EVENT DATE: 201501
